FAERS Safety Report 4712032-4 (Version None)
Quarter: 2005Q2

REPORT INFORMATION
  Report Type: 
  Country: None (occurrence: None)
  Receive Date: 20050629
  Receipt Date: 20050401
  Transmission Date: 20051028
  Serious: No
  Sender: FDA-Public Use
  Company Number: 05P-163-0295964-00

PATIENT
  Age: 71 Year
  Sex: Female
  Weight: 48.0813 kg

DRUGS (8)
  1. HUMIRA [Suspect]
     Indication: RHEUMATOID ARTHRITIS
     Dosage: 40 MG, 1 IN 2 WK, SUBCUTANEOUS
     Route: 058
     Dates: start: 20040101
  2. METHOTREXATE [Concomitant]
  3. CALCIUM WITH VITAMIN D [Concomitant]
  4. KETOPROFEN [Concomitant]
  5. PREDNISONE [Concomitant]
  6. HYDROCHLOROTHIAZIDE [Concomitant]
  7. FOLIC ACID [Concomitant]
  8. LEVOTHYROXINE SODIUM [Concomitant]

REACTIONS (3)
  - INJECTION SITE DISCOLOURATION [None]
  - INJECTION SITE ERYTHEMA [None]
  - INJECTION SITE PRURITUS [None]
